FAERS Safety Report 18564785 (Version 1)
Quarter: 2020Q4

REPORT INFORMATION
  Report Type: Spontaneous
  Country: GB (occurrence: GB)
  Receive Date: 20201201
  Receipt Date: 20201201
  Transmission Date: 20210114
  Serious: Yes (Hospitalization, Other)
  Sender: FDA-Public Use
  Company Number: GB-NOVAST LABORATORIES LTD.-2020NOV000337

PATIENT
  Age: 58 Year
  Sex: Female

DRUGS (5)
  1. FOLINIC ACID [Suspect]
     Active Substance: LEUCOVORIN
     Indication: ADENOCARCINOMA PANCREAS
     Dosage: UNK UNKNOWN, 2 WEEK CYCLE
     Route: 065
     Dates: start: 202003
  2. LEVOTHYROXINE. [Concomitant]
     Active Substance: LEVOTHYROXINE
     Indication: PRODUCT USED FOR UNKNOWN INDICATION
     Dosage: UNK UNKNOWN
     Route: 065
  3. IRINOTECAN HYDROCHLORIDE. [Suspect]
     Active Substance: IRINOTECAN HYDROCHLORIDE
     Indication: ADENOCARCINOMA PANCREAS
     Dosage: UNK UNKNOWN, 2 WEEK CYCLE
     Route: 065
     Dates: start: 202003
  4. FLUOROURACIL. [Suspect]
     Active Substance: FLUOROURACIL
     Indication: ADENOCARCINOMA PANCREAS
     Dosage: UNK UNKNOWN, 2 WEEK CYCLE
     Route: 065
     Dates: start: 202003
  5. OXALIPLATIN. [Suspect]
     Active Substance: OXALIPLATIN
     Indication: ADENOCARCINOMA PANCREAS
     Dosage: UNK UNKNOWN, 2 WEEK CYCLE
     Route: 065
     Dates: start: 202003

REACTIONS (6)
  - Aortitis [Recovered/Resolved]
  - Pleural effusion [Recovered/Resolved]
  - Acute kidney injury [Unknown]
  - Aortic intramural haematoma [Recovered/Resolved]
  - Neutropenic colitis [Unknown]
  - Klebsiella infection [Recovered/Resolved]
